FAERS Safety Report 8798493 (Version 2)
Quarter: 2015Q1

REPORT INFORMATION
  Report Type: Report from Study
  Country: US (occurrence: US)
  Receive Date: 20120920
  Receipt Date: 20150310
  Transmission Date: 20150721
  Serious: Yes (Death)
  Sender: FDA-Public Use
  Company Number: US-ROCHE-1101892

PATIENT
  Sex: Male

DRUGS (100)
  1. LEVETIRACETAM. [Concomitant]
     Active Substance: LEVETIRACETAM
     Route: 048
  2. NEULASTA [Concomitant]
     Active Substance: PEGFILGRASTIM
     Route: 058
  3. PALONOSETRON [Concomitant]
     Active Substance: PALONOSETRON
     Route: 042
  4. LOMUSTINE. [Concomitant]
     Active Substance: LOMUSTINE
     Route: 065
  5. TRIAMCINOLONE CREAM [Concomitant]
     Route: 042
  6. KEPPRA [Concomitant]
     Active Substance: LEVETIRACETAM
     Route: 042
  7. COD LIVER OIL [Concomitant]
     Active Substance: COD LIVER OIL
     Dosage: 1 TEASPOONFUL
     Route: 048
  8. SERIPHOS [Concomitant]
     Route: 042
  9. LEXAPRO [Concomitant]
     Active Substance: ESCITALOPRAM OXALATE
     Route: 042
  10. PROVIGIL [Concomitant]
     Active Substance: MODAFINIL
     Dosage: 2 CUP
     Route: 065
  11. OXANDRIN [Concomitant]
     Active Substance: OXANDROLONE
     Route: 048
  12. TEMOZOLOMIDE. [Concomitant]
     Active Substance: TEMOZOLOMIDE
     Route: 042
  13. AVASTIN [Suspect]
     Active Substance: BEVACIZUMAB
     Route: 042
     Dates: start: 20050930
  14. TEMODAR [Concomitant]
     Active Substance: TEMOZOLOMIDE
     Route: 065
  15. ACCUTANE [Concomitant]
     Active Substance: ISOTRETINOIN
     Route: 042
  16. ACCUTANE [Concomitant]
     Active Substance: ISOTRETINOIN
     Route: 042
  17. LOMUSTINE. [Concomitant]
     Active Substance: LOMUSTINE
     Route: 042
  18. TRIAMCINOLONE CREAM [Concomitant]
     Route: 042
  19. AMBIEN [Concomitant]
     Active Substance: ZOLPIDEM TARTRATE
     Route: 042
  20. GREEN TEA EXTRACT [Concomitant]
     Dosage: 2 CUP
     Route: 065
  21. TYLENOL [Concomitant]
     Active Substance: ACETAMINOPHEN
     Route: 042
  22. TYLENOL [Concomitant]
     Active Substance: ACETAMINOPHEN
     Route: 042
  23. PROTONIX (UNITED STATES) [Concomitant]
     Route: 042
  24. PROTONIX (UNITED STATES) [Concomitant]
     Dosage: 2 CUP
     Route: 065
  25. METFORMIN [Concomitant]
     Active Substance: METFORMIN HYDROCHLORIDE
     Route: 042
  26. XELODA [Suspect]
     Active Substance: CAPECITABINE
     Indication: PRODUCT USED FOR UNKNOWN INDICATION
     Route: 065
  27. DEXAMETHASONE. [Concomitant]
     Active Substance: DEXAMETHASONE
     Route: 042
  28. ACCUTANE [Concomitant]
     Active Substance: ISOTRETINOIN
     Route: 065
  29. TEMOZOLOMIDE. [Concomitant]
     Active Substance: TEMOZOLOMIDE
     Route: 065
  30. TEMOZOLOMIDE. [Concomitant]
     Active Substance: TEMOZOLOMIDE
     Route: 042
  31. NAMENDA [Concomitant]
     Active Substance: MEMANTINE HYDROCHLORIDE
     Route: 065
  32. GREEN TEA EXTRACT [Concomitant]
     Route: 042
  33. OXYCODONE [Concomitant]
     Active Substance: OXYCODONE
     Route: 042
  34. TYLENOL [Concomitant]
     Active Substance: ACETAMINOPHEN
     Dosage: 2 CUP
     Route: 065
  35. OXANDRIN [Concomitant]
     Active Substance: OXANDROLONE
     Dosage: 2 CUP
     Route: 065
  36. METFORMIN [Concomitant]
     Active Substance: METFORMIN HYDROCHLORIDE
     Dosage: 2 CUP
     Route: 065
  37. GRANISETRON HYDROCHLORIDE. [Concomitant]
     Active Substance: GRANISETRON HYDROCHLORIDE
     Route: 042
  38. ALOXI [Concomitant]
     Active Substance: PALONOSETRON HYDROCHLORIDE
     Route: 065
  39. ATIVAN [Concomitant]
     Active Substance: LORAZEPAM
     Route: 048
  40. PHENERGAN [Concomitant]
     Active Substance: PROMETHAZINE HYDROCHLORIDE
     Route: 042
  41. KEPPRA [Concomitant]
     Active Substance: LEVETIRACETAM
     Route: 042
  42. COD LIVER OIL [Concomitant]
     Active Substance: COD LIVER OIL
     Route: 042
  43. LEXAPRO [Concomitant]
     Active Substance: ESCITALOPRAM OXALATE
     Route: 048
  44. LEXAPRO [Concomitant]
     Active Substance: ESCITALOPRAM OXALATE
     Dosage: 2 CUP
     Route: 065
  45. PROVIGIL [Concomitant]
     Active Substance: MODAFINIL
     Route: 065
  46. PROVIGIL [Concomitant]
     Active Substance: MODAFINIL
     Route: 042
  47. PROTONIX (UNITED STATES) [Concomitant]
     Route: 048
  48. ALIMTA [Concomitant]
     Active Substance: PEMETREXED DISODIUM
     Route: 065
  49. ALIMTA [Concomitant]
     Active Substance: PEMETREXED DISODIUM
     Route: 042
  50. ALIMTA [Concomitant]
     Active Substance: PEMETREXED DISODIUM
     Dosage: 2 CUP
     Route: 065
  51. LORTAB (UNITED STATES) [Concomitant]
     Route: 065
  52. LORTAB (UNITED STATES) [Concomitant]
     Route: 042
  53. LORTAB (UNITED STATES) [Concomitant]
     Dosage: 2 CUP
     Route: 065
  54. KYTRIL [Concomitant]
     Active Substance: GRANISETRON HYDROCHLORIDE
     Route: 048
  55. DECADRON [Concomitant]
     Active Substance: DEXAMETHASONE
     Route: 065
  56. PALONOSETRON [Concomitant]
     Active Substance: PALONOSETRON
     Route: 042
  57. TIOGUANINE [Concomitant]
     Active Substance: THIOGUANINE ANHYDROUS
     Route: 042
  58. OXYCODONE [Concomitant]
     Active Substance: OXYCODONE
     Route: 065
  59. SERIPHOS [Concomitant]
     Route: 065
  60. PROVIGIL [Concomitant]
     Active Substance: MODAFINIL
     Route: 042
  61. LORTAB (UNITED STATES) [Concomitant]
     Route: 042
  62. TARCEVA [Suspect]
     Active Substance: ERLOTINIB HYDROCHLORIDE
     Indication: BRAIN NEOPLASM MALIGNANT
     Route: 048
     Dates: start: 20051114
  63. DECADRON [Concomitant]
     Active Substance: DEXAMETHASONE
     Route: 065
  64. ARANESP [Concomitant]
     Active Substance: DARBEPOETIN ALFA
     Route: 058
  65. PALONOSETRON [Concomitant]
     Active Substance: PALONOSETRON
     Route: 042
  66. TEMODAR [Concomitant]
     Active Substance: TEMOZOLOMIDE
     Route: 042
  67. TIOGUANINE [Concomitant]
     Active Substance: THIOGUANINE ANHYDROUS
     Route: 065
  68. TIOGUANINE [Concomitant]
     Active Substance: THIOGUANINE ANHYDROUS
     Route: 042
  69. NAMENDA [Concomitant]
     Active Substance: MEMANTINE HYDROCHLORIDE
     Route: 042
  70. COD LIVER OIL [Concomitant]
     Active Substance: COD LIVER OIL
     Route: 042
  71. GREEN TEA EXTRACT [Concomitant]
     Dosage: T TABL;ET
     Route: 048
  72. SERIPHOS [Concomitant]
     Route: 042
  73. SERIPHOS [Concomitant]
     Dosage: 2 CUP
     Route: 065
  74. LEXAPRO [Concomitant]
     Active Substance: ESCITALOPRAM OXALATE
     Route: 042
  75. PROTONIX (UNITED STATES) [Concomitant]
     Route: 042
  76. OXANDRIN [Concomitant]
     Active Substance: OXANDROLONE
     Route: 042
  77. OXANDRIN [Concomitant]
     Active Substance: OXANDROLONE
     Route: 042
  78. METFORMIN [Concomitant]
     Active Substance: METFORMIN HYDROCHLORIDE
     Route: 048
  79. TEMOZOLOMIDE. [Concomitant]
     Active Substance: TEMOZOLOMIDE
     Route: 042
  80. AVASTIN [Suspect]
     Active Substance: BEVACIZUMAB
     Indication: BRAIN NEOPLASM MALIGNANT
     Route: 042
  81. ATROPINE SULFATE. [Concomitant]
     Active Substance: ATROPINE SULFATE
     Dosage: 0.5-1 MG
     Route: 042
  82. ALOXI [Concomitant]
     Active Substance: PALONOSETRON HYDROCHLORIDE
     Route: 065
  83. CAMPTOSAR [Concomitant]
     Active Substance: IRINOTECAN HYDROCHLORIDE
     Route: 042
  84. ZOFRAN [Concomitant]
     Active Substance: ONDANSETRON HYDROCHLORIDE
     Route: 042
  85. TEMODAR [Concomitant]
     Active Substance: TEMOZOLOMIDE
     Route: 042
  86. LOMUSTINE. [Concomitant]
     Active Substance: LOMUSTINE
     Route: 042
  87. NAMENDA [Concomitant]
     Active Substance: MEMANTINE HYDROCHLORIDE
     Route: 042
  88. TRIAMCINOLONE CREAM [Concomitant]
     Route: 065
  89. AMBIEN [Concomitant]
     Active Substance: ZOLPIDEM TARTRATE
     Route: 065
  90. AMBIEN [Concomitant]
     Active Substance: ZOLPIDEM TARTRATE
     Route: 042
  91. GREEN TEA EXTRACT [Concomitant]
     Route: 042
  92. OXYCODONE [Concomitant]
     Active Substance: OXYCODONE
     Dosage: 2 CUP
     Route: 065
  93. TEMOZOLOMIDE. [Concomitant]
     Active Substance: TEMOZOLOMIDE
     Route: 042
  94. KEPPRA [Concomitant]
     Active Substance: LEVETIRACETAM
     Route: 048
  95. OXYCODONE [Concomitant]
     Active Substance: OXYCODONE
     Route: 042
  96. TYLENOL [Concomitant]
     Active Substance: ACETAMINOPHEN
     Route: 065
  97. METFORMIN [Concomitant]
     Active Substance: METFORMIN HYDROCHLORIDE
     Route: 042
  98. ALIMTA [Concomitant]
     Active Substance: PEMETREXED DISODIUM
     Route: 042
  99. TEMOZOLOMIDE. [Concomitant]
     Active Substance: TEMOZOLOMIDE
     Route: 065
  100. TEMOZOLOMIDE. [Concomitant]
     Active Substance: TEMOZOLOMIDE
     Dosage: 2 CUP
     Route: 065

REACTIONS (28)
  - Headache [Unknown]
  - Lung disorder [Recovering/Resolving]
  - Tremor [Recovering/Resolving]
  - Hypervigilance [Unknown]
  - Diabetes mellitus [Unknown]
  - Alopecia [Unknown]
  - Sinusitis [Unknown]
  - Rhinorrhoea [Unknown]
  - Fatigue [Unknown]
  - Gastrooesophageal reflux disease [Recovering/Resolving]
  - Rash [Unknown]
  - Diarrhoea [Unknown]
  - Confusional state [Unknown]
  - Nausea [Unknown]
  - Vomiting [Unknown]
  - Visual field defect [Unknown]
  - Hemiparesis [Unknown]
  - Asthenia [Unknown]
  - Oral discomfort [Unknown]
  - Decreased appetite [Unknown]
  - Disease progression [Recovering/Resolving]
  - Memory impairment [Unknown]
  - Bone marrow failure [Unknown]
  - Xeroderma [Unknown]
  - Gingivitis [Unknown]
  - Death [Fatal]
  - Dehydration [Unknown]
  - Weight decreased [Unknown]
